FAERS Safety Report 11082488 (Version 3)
Quarter: 2017Q4

REPORT INFORMATION
  Report Type: Report from Study
  Country: GB (occurrence: GB)
  Receive Date: 20150501
  Receipt Date: 20171211
  Transmission Date: 20180320
  Serious: Yes (Death, Other)
  Sender: FDA-Public Use
  Company Number: GB-JNJFOC-20150423327

PATIENT
  Age: 86 Year
  Sex: Male

DRUGS (1)
  1. IBRUTINIB [Suspect]
     Active Substance: IBRUTINIB
     Indication: MANTLE CELL LYMPHOMA
     Route: 048
     Dates: end: 20150307

REACTIONS (6)
  - Haemorrhage [Unknown]
  - Skin fissures [Unknown]
  - Diarrhoea [Unknown]
  - Conjunctival haemorrhage [Unknown]
  - Mantle cell lymphoma [Fatal]
  - Contusion [Unknown]
